FAERS Safety Report 7388859-X (Version None)
Quarter: 2011Q2

REPORT INFORMATION
  Report Type: 
  Country: None (occurrence: None)
  Receive Date: 20110401
  Receipt Date: 20101019
  Transmission Date: 20111010
  Serious: Yes (Hospitalization, Other)
  Sender: FDA-Public Use
  Company Number: US-BAYER-201016396NA

PATIENT
  Sex: Female
  Weight: 68.027 kg

DRUGS (4)
  1. YASMIN [Suspect]
     Dosage: UNK UNK, UNK
     Route: 048
     Dates: start: 20080303
  2. OCELLA [Suspect]
     Dosage: UNK
     Dates: start: 20090309
  3. THEOPHYLLINE [Concomitant]
     Dosage: UNK
  4. UNCODEABLE ^UNCLASSIFIABLE^ [Concomitant]
     Indication: ASTHMA

REACTIONS (3)
  - CHOLECYSTITIS [None]
  - ABDOMINAL PAIN LOWER [None]
  - CHOLECYSTECTOMY [None]
